FAERS Safety Report 8574436-1 (Version None)
Quarter: 2012Q3

REPORT INFORMATION
  Report Type: 
  Country: None (occurrence: None)
  Receive Date: 20120806
  Receipt Date: 20120307
  Transmission Date: 20120928
  Serious: No
  Sender: FDA-Public Use
  Company Number: US-ABBOTT-12P-163-0912133-00

PATIENT
  Sex: Female
  Weight: 79.904 kg

DRUGS (3)
  1. SINGULAIR [Concomitant]
     Indication: PRODUCT USED FOR UNKNOWN INDICATION
  2. DEPAKOTE ER [Suspect]
     Indication: CONVULSION
  3. DECLINED FULL LIST [Concomitant]
     Indication: PRODUCT USED FOR UNKNOWN INDICATION

REACTIONS (3)
  - WEIGHT INCREASED [None]
  - POLYCYSTIC OVARIES [None]
  - AMENORRHOEA [None]
